FAERS Safety Report 4723513-1 (Version None)
Quarter: 2005Q3

REPORT INFORMATION
  Report Type: 
  Country: None (occurrence: None)
  Receive Date: 20050721
  Receipt Date: 20050721
  Transmission Date: 20060218
  Serious: Yes (Life-Threatening, Hospitalization, Disabling)
  Sender: FDA-Public Use
  Company Number: None

PATIENT
  Sex: Female
  Weight: 67.1324 kg

DRUGS (9)
  1. HUMIRA [Suspect]
     Indication: RHEUMATOID ARTHRITIS
     Dosage: 40MG EVERY 2 WEEKS SUBCUTANEOUS
     Route: 058
     Dates: start: 20030901, end: 20041001
  2. METHOTREXATE [Concomitant]
  3. PREDNISONE [Concomitant]
  4. HYDROXYCHLOROQUINE SULFATE [Concomitant]
  5. WELLBUTRIN [Concomitant]
  6. ESTRADIOL [Concomitant]
  7. NEXIUM [Concomitant]
  8. ADVAIR DISKUS 100/50 [Concomitant]
  9. VENTOLIN [Concomitant]

REACTIONS (4)
  - CARDIAC FAILURE HIGH OUTPUT [None]
  - OEDEMA PERIPHERAL [None]
  - PNEUMONIA [None]
  - WOUND INFECTION [None]
